FAERS Safety Report 16260457 (Version 1)
Quarter: 2019Q2

REPORT INFORMATION
  Report Type: Spontaneous
  Country: US (occurrence: US)
  Receive Date: 20190430
  Receipt Date: 20190430
  Transmission Date: 20190711
  Serious: No
  Sender: FDA-Public Use
  Company Number: None

PATIENT
  Age: 56 Year
  Sex: Male
  Weight: 111.6 kg

DRUGS (1)
  1. DAPTOMYCIN. [Suspect]
     Active Substance: DAPTOMYCIN
     Indication: SEPSIS
     Route: 041
     Dates: start: 20190410, end: 20190422

REACTIONS (1)
  - Blood creatine phosphokinase increased [None]

NARRATIVE: CASE EVENT DATE: 20190422
